FAERS Safety Report 23965135 (Version 1)
Quarter: 2024Q2

REPORT INFORMATION
  Report Type: Spontaneous
  Country: BG (occurrence: None)
  Receive Date: 20240612
  Receipt Date: 20240612
  Transmission Date: 20240716
  Serious: Yes (Other)
  Sender: FDA-Public Use
  Company Number: 2024A134227

PATIENT
  Age: 38 Year
  Sex: Male

DRUGS (5)
  1. XIGDUO XR [Suspect]
     Active Substance: DAPAGLIFLOZIN PROPANEDIOL\METFORMIN HYDROCHLORIDE
     Route: 048
  2. FEBUXOSTAT [Concomitant]
     Active Substance: FEBUXOSTAT
     Dosage: 120 ? 60 MG
  3. XIGDUO XR [Concomitant]
     Active Substance: DAPAGLIFLOZIN PROPANEDIOL\METFORMIN HYDROCHLORIDE
     Dosage: 5/1000 2X1 T
  4. LEVOTHYROXINE [Concomitant]
     Active Substance: LEVOTHYROXINE\LEVOTHYROXINE SODIUM
     Dosage: 50 MCG
  5. PERINDOPRIL [Concomitant]
     Active Substance: PERINDOPRIL

REACTIONS (3)
  - Glomerulonephritis [Unknown]
  - Tubulointerstitial nephritis [Unknown]
  - Weight decreased [Unknown]
